FAERS Safety Report 8662871 (Version 2)
Quarter: 2012Q4

REPORT INFORMATION
  Report Type: 
  Country: CA (occurrence: CA)
  Receive Date: 20120712
  Receipt Date: 20121214
  Transmission Date: 20130627
  Serious: Yes (Death)
  Sender: FDA-Public Use
  Company Number: CA-SANOFI-AVENTIS-2012SA048162

PATIENT
  Age: 69 Year
  Sex: Female
  Weight: 73.4 kg

DRUGS (2)
  1. TAXOTERE [Suspect]
     Indication: BREAST CANCER
     Route: 042
     Dates: start: 2007, end: 2007
  2. NEULASTA [Concomitant]
     Route: 058

REACTIONS (2)
  - Interstitial lung disease [Fatal]
  - Dyspnoea [Fatal]
